FAERS Safety Report 4522211-7 (Version None)
Quarter: 2004Q4

REPORT INFORMATION
  Report Type: 
  Country: None (occurrence: None)
  Receive Date: 20041207
  Receipt Date: 20041130
  Transmission Date: 20050328
  Serious: Yes (Hospitalization, Other)
  Sender: FDA-Public Use
  Company Number: 2004-11-1743

PATIENT
  Age: 82 Year
  Sex: Male

DRUGS (10)
  1. CLARITIN-D [Suspect]
     Indication: POSTNASAL DRIP
     Dosage: 1 TABLET QD ORAL
     Route: 048
     Dates: start: 20041121, end: 20041124
  2. ALTACE [Concomitant]
  3. METOPROLOL [Concomitant]
  4. LIPITOR [Concomitant]
  5. MEMANTINE [Concomitant]
  6. RISPERIDONE [Concomitant]
  7. ARICEPT [Concomitant]
  8. FLOMAX [Concomitant]
  9. FLONASE [Concomitant]
  10. MULTI-VITAMINS [Concomitant]

REACTIONS (3)
  - CEREBROVASCULAR ACCIDENT [None]
  - DYSARTHRIA [None]
  - MYOCLONUS [None]
